FAERS Safety Report 15357516 (Version 1)
Quarter: 2018Q4

REPORT INFORMATION
  Report Type: Spontaneous
  Country: FR (occurrence: FR)
  Receive Date: 20180906
  Receipt Date: 20180906
  Transmission Date: 20190204
  Serious: Yes (Life-Threatening, Hospitalization)
  Sender: FDA-Public Use
  Company Number: FR-PFIZER INC-2018353501

PATIENT
  Age: 73 Year
  Sex: Female
  Weight: 55 kg

DRUGS (12)
  1. MOVICOL [Suspect]
     Active Substance: POLYETHYLENE GLYCOL 3350\POTASSIUM CHLORIDE\SODIUM BICARBONATE\SODIUM CHLORIDE
     Dosage: 6 DF, SINGLE
     Route: 048
     Dates: start: 20180801, end: 20180801
  2. BISOCE [Suspect]
     Active Substance: BISOPROLOL
     Indication: HYPERTENSION
     Dosage: 3.75 MG, SINGLE
     Route: 048
     Dates: start: 20180801, end: 20180801
  3. LOXAPAC [LOXAPINE SUCCINATE] [Suspect]
     Active Substance: LOXAPINE SUCCINATE
     Dosage: 225 MG, SINGLE
     Route: 048
     Dates: start: 20180801, end: 20180801
  4. LAMICTAL [Suspect]
     Active Substance: LAMOTRIGINE
     Indication: MIXED ANXIETY AND DEPRESSIVE DISORDER
     Dosage: 150 MG, SINGLE
     Route: 048
     Dates: start: 20180801, end: 20180801
  5. AMLODIPINE [Suspect]
     Active Substance: AMLODIPINE BESYLATE
     Indication: HYPERTENSION
     Dosage: 30 MG, SINGLE
     Route: 048
     Dates: start: 20180801, end: 20180801
  6. OLANZAPINE. [Suspect]
     Active Substance: OLANZAPINE
     Indication: MIXED ANXIETY AND DEPRESSIVE DISORDER
     Dosage: 90 MG, 1X/DAY
     Route: 048
     Dates: start: 20180801, end: 20180801
  7. SERESTA [Suspect]
     Active Substance: OXAZEPAM
     Indication: MIXED ANXIETY AND DEPRESSIVE DISORDER
     Dosage: 120 MG, SINGLE
     Route: 048
     Dates: start: 20180801, end: 20180801
  8. TERALITHE [Suspect]
     Active Substance: LITHIUM CARBONATE
     Indication: PSYCHOTIC DISORDER
     Dosage: 1200 MG, SINGLE
     Route: 048
     Dates: start: 20180801, end: 20180801
  9. BRINTELLIX [Suspect]
     Active Substance: VORTIOXETINE HYDROBROMIDE
     Indication: MIXED ANXIETY AND DEPRESSIVE DISORDER
     Route: 048
     Dates: start: 20180801, end: 20180801
  10. IMOVANE [Suspect]
     Active Substance: ZOPICLONE
     Indication: SEDATIVE THERAPY
     Dosage: 22.5 MG, SINGLE
     Route: 048
     Dates: start: 20180801, end: 20180801
  11. ESOMEPRAZOLE MAGNESIUM. [Suspect]
     Active Substance: ESOMEPRAZOLE MAGNESIUM
     Indication: OESOPHAGITIS
     Dosage: 120 MG, 1X/DAY
     Route: 048
     Dates: start: 20180801, end: 20180801
  12. MIANSERINE HCL [Suspect]
     Active Substance: MIANSERIN HYDROCHLORIDE
     Indication: MIXED ANXIETY AND DEPRESSIVE DISORDER
     Dosage: 180 MG, SINGLE
     Route: 048
     Dates: start: 20180801, end: 20180801

REACTIONS (5)
  - Toxicity to various agents [Recovered/Resolved]
  - Oxygen saturation decreased [Recovered/Resolved]
  - Somnolence [Recovered/Resolved]
  - Antipsychotic drug level above therapeutic [Recovered/Resolved]
  - Overdose [Recovered/Resolved]

NARRATIVE: CASE EVENT DATE: 20180801
